FAERS Safety Report 25272644 (Version 1)
Quarter: 2025Q2

REPORT INFORMATION
  Report Type: Spontaneous
  Country: AU (occurrence: AU)
  Receive Date: 20250506
  Receipt Date: 20250506
  Transmission Date: 20250717
  Serious: Yes (Other)
  Sender: NOVARTIS
  Company Number: AU-SANDOZ-SDZ2025AU028094

PATIENT
  Age: 44 Year
  Sex: Female

DRUGS (2)
  1. LETROZOLE [Suspect]
     Active Substance: LETROZOLE
     Indication: Menopausal symptoms
     Dosage: 2.5 MG, QD
     Route: 048
     Dates: start: 20240924, end: 20241110
  2. RIBOCICLIB [Suspect]
     Active Substance: RIBOCICLIB
     Indication: Menopausal symptoms
     Dosage: 600 MG, QD
     Route: 048
     Dates: start: 20240429, end: 20241014

REACTIONS (1)
  - Proteinuria [Unknown]

NARRATIVE: CASE EVENT DATE: 20241017
